FAERS Safety Report 25270628 (Version 1)
Quarter: 2025Q2

REPORT INFORMATION
  Report Type: Spontaneous
  Country: US (occurrence: US)
  Receive Date: 20250505
  Receipt Date: 20250505
  Transmission Date: 20250717
  Serious: No
  Sender: JOHNSON AND JOHNSON
  Company Number: US-JNJFOC-20250502861

PATIENT

DRUGS (1)
  1. XARELTO [Suspect]
     Active Substance: RIVAROXABAN
     Indication: Product used for unknown indication
     Route: 048

REACTIONS (6)
  - Inflammation [Unknown]
  - Pain [Unknown]
  - Pain in extremity [Unknown]
  - Peripheral swelling [Unknown]
  - Myalgia [Unknown]
  - Fatigue [Unknown]
